FAERS Safety Report 8405268-2 (Version None)
Quarter: 2012Q2

REPORT INFORMATION
  Report Type: 
  Country: None (occurrence: None)
  Receive Date: 20120603
  Receipt Date: 20120521
  Transmission Date: 20120825
  Serious: Yes (Other)
  Sender: FDA-Public Use
  Company Number: IT-TEVA-339224ISR

PATIENT
  Age: 53 Year
  Sex: Male

DRUGS (2)
  1. VALPROIC ACID [Suspect]
     Indication: STATUS EPILEPTICUS
     Route: 065
  2. PHENYTOIN [Interacting]
     Indication: STATUS EPILEPTICUS
     Route: 065

REACTIONS (3)
  - ELECTROCARDIOGRAM ABNORMAL [None]
  - DRUG INTERACTION [None]
  - TOXICITY TO VARIOUS AGENTS [None]
